FAERS Safety Report 23181975 (Version 1)
Quarter: 2023Q4

REPORT INFORMATION
  Report Type: Spontaneous
  Country: US (occurrence: None)
  Receive Date: 20231113
  Receipt Date: 20231113
  Transmission Date: 20240109
  Serious: Yes (Hospitalization)
  Sender: FDA-Public Use
  Company Number: None

PATIENT
  Age: 65 Year
  Sex: Male
  Weight: 80 kg

DRUGS (1)
  1. LAGEVRIO [Suspect]
     Active Substance: MOLNUPIRAVIR

REACTIONS (6)
  - Rash maculo-papular [None]
  - Fatigue [None]
  - Pyrexia [None]
  - Tremor [None]
  - Chills [None]
  - Cough [None]

NARRATIVE: CASE EVENT DATE: 20231109
